FAERS Safety Report 8118573-4 (Version None)
Quarter: 2012Q1

REPORT INFORMATION
  Report Type: 
  Country: None (occurrence: None)
  Receive Date: 20120207
  Receipt Date: 20120202
  Transmission Date: 20120608
  Serious: Yes (Other)
  Sender: FDA-Public Use
  Company Number: RS-PFIZER INC-2012013952

PATIENT
  Age: 60 Year
  Sex: Female
  Weight: 73 kg

DRUGS (9)
  1. BECLOFORTE [Concomitant]
     Indication: ASTHMA
     Dosage: 0.25 MG, 2X/DAY
     Route: 055
  2. ATORVASTATIN CALCIUM [Suspect]
     Indication: BLOOD CHOLESTEROL INCREASED
     Dosage: 40 MG, 1X/DAY
     Route: 048
     Dates: start: 20070101
  3. ATORVASTATIN CALCIUM [Suspect]
     Indication: BLOOD TRIGLYCERIDES INCREASED
  4. MONOPRIL [Concomitant]
     Indication: HYPERTENSION
     Dosage: 20 MG, 2X/DAY
     Route: 048
  5. ASPIRIN [Concomitant]
     Indication: PROPHYLAXIS
     Dosage: 100 MG, 1X/DAY IN THE MORNING
     Route: 048
  6. HYDROCHLOROTHIAZIDE [Concomitant]
     Indication: HYPERTENSION
     Dosage: 25 MG, ALTERNATE DAY
     Route: 048
  7. FENOFIBRATE [Suspect]
     Indication: BLOOD TRIGLYCERIDES INCREASED
     Dosage: 160 MG, 1X/DAY
     Route: 048
     Dates: start: 20110901, end: 20111001
  8. ATORVASTATIN CALCIUM [Suspect]
     Indication: PROPHYLAXIS
  9. VENTOLIN [Concomitant]
     Indication: ASTHMA
     Dosage: 0.1 MG, 2INHALATIONES AS NEEDED
     Route: 055

REACTIONS (7)
  - FATIGUE [None]
  - BLOOD CREATINE PHOSPHOKINASE INCREASED [None]
  - ASPARTATE AMINOTRANSFERASE INCREASED [None]
  - MYOPATHY [None]
  - MYALGIA [None]
  - ALANINE AMINOTRANSFERASE INCREASED [None]
  - BLOOD LACTATE DEHYDROGENASE INCREASED [None]
